FAERS Safety Report 21022560 (Version 2)
Quarter: 2022Q4

REPORT INFORMATION
  Report Type: Spontaneous
  Country: US (occurrence: US)
  Receive Date: 20220629
  Receipt Date: 20221114
  Transmission Date: 20230112
  Serious: No
  Sender: FDA-Public Use
  Company Number: US-BRISTOL-MYERS SQUIBB COMPANY-2022-065385

PATIENT
  Age: 57 Year
  Sex: Female

DRUGS (8)
  1. OPDIVO [Suspect]
     Active Substance: NIVOLUMAB
     Indication: Metastatic neoplasm
     Route: 042
     Dates: start: 201501
  2. OPDIVO [Suspect]
     Active Substance: NIVOLUMAB
     Dosage: DOSE: UNKNOWN
     Route: 042
  3. OPDIVO [Suspect]
     Active Substance: NIVOLUMAB
     Dosage: DOSE: UNKNOWN, 6 DOSES
     Route: 042
     Dates: start: 20220118
  4. YERVOY [Suspect]
     Active Substance: IPILIMUMAB
     Indication: Metastatic neoplasm
     Route: 042
     Dates: start: 201501
  5. YERVOY [Suspect]
     Active Substance: IPILIMUMAB
     Dosage: DOSE: UNKNOWN,  6 DOSES
     Route: 042
     Dates: start: 20220118
  6. KEYTRUDA [Concomitant]
     Active Substance: PEMBROLIZUMAB
     Indication: Product used for unknown indication
     Dosage: UNKNOWN
     Route: 065
  7. IMFINZI [Concomitant]
     Active Substance: DURVALUMAB
     Indication: Product used for unknown indication
     Dosage: UNKNOWN
     Route: 065
  8. TECENTRIQ [Concomitant]
     Active Substance: ATEZOLIZUMAB
     Indication: Product used for unknown indication
     Dosage: UNKNOWN
     Route: 065

REACTIONS (2)
  - Movement disorder [Unknown]
  - Arthropathy [Unknown]

NARRATIVE: CASE EVENT DATE: 20220508
